FAERS Safety Report 6986381-3 (Version None)
Quarter: 2010Q3

REPORT INFORMATION
  Report Type: 
  Country: None (occurrence: None)
  Receive Date: 20100915
  Receipt Date: 20090629
  Transmission Date: 20110219
  Serious: No
  Sender: FDA-Public Use
  Company Number: US-WYE-H09951709

PATIENT
  Sex: Female
  Weight: 76.73 kg

DRUGS (4)
  1. PRISTIQ [Suspect]
     Indication: DEPRESSION
     Route: 048
     Dates: start: 20090616
  2. LEXAPRO [Concomitant]
     Indication: DEPRESSION
     Dates: start: 20090201, end: 20090601
  3. LEXAPRO [Concomitant]
     Dates: start: 20090601, end: 20090601
  4. LEXAPRO [Concomitant]
     Dates: start: 20090601, end: 20090628

REACTIONS (3)
  - ANXIETY [None]
  - INSOMNIA [None]
  - PARAESTHESIA [None]
